FAERS Safety Report 9516744 (Version 1)
Quarter: 2013Q3

REPORT INFORMATION
  Report Type: Spontaneous
  Country: US (occurrence: US)
  Receive Date: 20130911
  Receipt Date: 20130911
  Transmission Date: 20140515
  Serious: No
  Sender: FDA-Public Use
  Company Number: US-ASTRAZENECA-2013SE51479

PATIENT
  Age: 73 Year
  Sex: Male
  Weight: 72.6 kg

DRUGS (12)
  1. SYMBICORT [Suspect]
     Indication: CHRONIC OBSTRUCTIVE PULMONARY DISEASE
     Dosage: 160/4.5MCG, 2 PUFFS BID
     Route: 055
     Dates: start: 20130627
  2. SPIRIVA INHALER 18MCG [Concomitant]
     Indication: CHRONIC OBSTRUCTIVE PULMONARY DISEASE
     Dosage: 180MCG, 1 PUFF DAILY
     Route: 055
  3. VENTOLIN INHALER 90MCG [Concomitant]
     Indication: CHRONIC OBSTRUCTIVE PULMONARY DISEASE
     Dosage: 90MCG, PRN
     Route: 055
  4. ALBUTEROL NEBULIZER 2.5MG/ML [Concomitant]
     Indication: CHRONIC OBSTRUCTIVE PULMONARY DISEASE
     Dosage: 2.5MG/ML, QID
     Route: 045
  5. OXYGEN [Concomitant]
     Indication: CHRONIC OBSTRUCTIVE PULMONARY DISEASE
     Dosage: 4LITERS
     Route: 045
     Dates: start: 2005
  6. KLOR-KON [Concomitant]
     Route: 048
     Dates: start: 2003
  7. FUROSEMIDE [Concomitant]
     Indication: CARDIAC FAILURE CONGESTIVE
     Route: 048
  8. AMLODIPINE BESYLATE [Concomitant]
     Indication: HYPERTENSION
     Route: 048
  9. BENAZEPRIL [Concomitant]
     Indication: HYPERTENSION
     Route: 048
  10. GLIMEPIRIDE [Concomitant]
     Indication: GLUCOSE TOLERANCE IMPAIRED
     Route: 048
     Dates: start: 201210
  11. HYDROXYCHLOROQUINE [Concomitant]
     Indication: RHEUMATOID ARTHRITIS
     Route: 048
     Dates: start: 2010
  12. METOPROLOL TARTRATE [Concomitant]
     Indication: HEART RATE ABNORMAL
     Route: 048

REACTIONS (4)
  - Rheumatoid arthritis [Unknown]
  - Glucose tolerance impaired [Unknown]
  - Hypoacusis [Unknown]
  - Drug dose omission [Unknown]
